FAERS Safety Report 5712281-2 (Version None)
Quarter: 2008Q2

REPORT INFORMATION
  Report Type: 
  Country: None (occurrence: None)
  Receive Date: 20080421
  Receipt Date: 20080421
  Transmission Date: 20081010
  Serious: No
  Sender: FDA-Public Use
  Company Number: None

PATIENT
  Age: 37 Year
  Sex: Male
  Weight: 83.9154 kg

DRUGS (1)
  1. VERAMYST [Suspect]
     Indication: HYPERSENSITIVITY
     Dosage: ONE SPRAY 2X DAILY NASAL
     Route: 045

REACTIONS (7)
  - CONFUSIONAL STATE [None]
  - HEADACHE [None]
  - HYPOAESTHESIA [None]
  - MIGRAINE [None]
  - PERIPHERAL COLDNESS [None]
  - VISION BLURRED [None]
  - VISUAL DISTURBANCE [None]
